FAERS Safety Report 17975778 (Version 1)
Quarter: 2020Q3

REPORT INFORMATION
  Report Type: Spontaneous
  Country: BR (occurrence: BR)
  Receive Date: 20200702
  Receipt Date: 20200702
  Transmission Date: 20201103
  Serious: Yes (Other)
  Sender: FDA-Public Use
  Company Number: BR-SA-2020SA169192

PATIENT

DRUGS (2)
  1. DUPILUMAB [Suspect]
     Active Substance: DUPILUMAB
     Indication: DERMATITIS ATOPIC
     Dosage: UNK UNK, QCY
  2. DUPILUMAB [Suspect]
     Active Substance: DUPILUMAB
     Indication: CUTANEOUS T-CELL LYMPHOMA

REACTIONS (10)
  - Lymphocytic infiltration [Recovered/Resolved]
  - Skin plaque [Recovering/Resolving]
  - Eczema [Recovering/Resolving]
  - Cutaneous T-cell lymphoma stage III [Recovering/Resolving]
  - Rash [Recovering/Resolving]
  - Tumour ulceration [Recovering/Resolving]
  - Disease progression [Recovering/Resolving]
  - Unintentional use for unapproved indication [Recovering/Resolving]
  - Eosinophilic cellulitis [Recovering/Resolving]
  - Dermatitis psoriasiform [Recovering/Resolving]
